FAERS Safety Report 19905950 (Version 5)
Quarter: 2023Q2

REPORT INFORMATION
  Report Type: Report from Study
  Country: US (occurrence: US)
  Receive Date: 20211001
  Receipt Date: 20230607
  Transmission Date: 20230721
  Serious: Yes (Other)
  Sender: FDA-Public Use
  Company Number: US-SHIRE-US202017690

PATIENT
  Sex: Female

DRUGS (4)
  1. HUMAN IMMUNOGLOBULIN G [Suspect]
     Active Substance: HUMAN IMMUNOGLOBULIN G
     Indication: Primary immunodeficiency syndrome
     Dosage: UNK
     Route: 065
  2. CUTAQUIG [Suspect]
     Active Substance: HUMAN IMMUNOGLOBULIN G
     Indication: Primary immunodeficiency syndrome
     Dosage: UNK
     Route: 065
  3. COVID-19 VACCINE NOS [Suspect]
     Active Substance: COVID-19 VACCINE NOS
     Indication: Product used for unknown indication
     Dosage: UNK
     Route: 065
  4. GAMMAGARD [Concomitant]
     Active Substance: HUMAN IMMUNOGLOBULIN G
     Indication: Primary immunodeficiency syndrome
     Route: 065

REACTIONS (13)
  - Hallucination [Recovered/Resolved]
  - Loss of consciousness [Recovered/Resolved]
  - Fall [Unknown]
  - Depression [Unknown]
  - Asthma [Unknown]
  - Injection site reaction [Unknown]
  - Device infusion issue [Recovered/Resolved]
  - Gait inability [Unknown]
  - Sinusitis [Unknown]
  - COVID-19 [Recovered/Resolved]
  - Cough [Unknown]
  - Arthralgia [Unknown]
  - Incorrect drug administration rate [Unknown]
